FAERS Safety Report 4919348-7 (Version None)
Quarter: 2006Q1

REPORT INFORMATION
  Report Type: 
  Country: None (occurrence: None)
  Receive Date: 20060216
  Receipt Date: 20060206
  Transmission Date: 20060701
  Serious: Yes (Hospitalization, Other)
  Sender: FDA-Public Use
  Company Number: 2006018812

PATIENT
  Sex: Female

DRUGS (14)
  1. NORVASC [Suspect]
     Indication: HYPERTENSION
     Dosage: 2.5 MG (2.5 MG, DAILY INTERVAL:  EVERY DAY)
  2. DIPYRIDAMOLE (IPYRIDAMOLE) [Concomitant]
  3. LISINOPRIL [Concomitant]
  4. LEXAPRO [Concomitant]
  5. ASPIRIN [Concomitant]
  6. INSULIN [Concomitant]
  7. LOPERAMIDE HCL [Concomitant]
  8. MULTIVITAMIN [Concomitant]
  9. VITAMIN B6 (VITAMIN B6) [Concomitant]
  10. FOLIC ACID [Concomitant]
  11. CALCIUM (CALCIUM) [Concomitant]
  12. VITAMIN E [Concomitant]
  13. VITAMIN C (VITAMIN C) [Concomitant]
  14. NOVOLOG [Concomitant]

REACTIONS (3)
  - BLOOD GLUCOSE FLUCTUATION [None]
  - COLITIS ISCHAEMIC [None]
  - LOSS OF CONSCIOUSNESS [None]
